FAERS Safety Report 8244665-5 (Version None)
Quarter: 2012Q1

REPORT INFORMATION
  Report Type: 
  Country: None (occurrence: None)
  Receive Date: 20120329
  Receipt Date: 20111222
  Transmission Date: 20120608
  Serious: No
  Sender: FDA-Public Use
  Company Number: US-MYLANLABS-2011S1026447

PATIENT
  Age: 84 Year
  Sex: Female

DRUGS (8)
  1. ZOFRAN [Concomitant]
     Indication: NAUSEA
     Dates: start: 20111101
  2. FENTANYL-100 [Suspect]
     Indication: ABDOMINAL PAIN UPPER
     Dosage: Q72H
     Route: 062
     Dates: start: 20111130
  3. PREDNISONE TAB [Concomitant]
     Indication: ASTHMA
     Dates: start: 19960101
  4. ARICEPT [Concomitant]
     Dates: start: 19960101
  5. TYLENOL [Concomitant]
     Dates: start: 20111101
  6. MEGESTROL ACETATE [Concomitant]
     Indication: DECREASED APPETITE
     Dates: start: 20111101
  7. PROTONIX [Concomitant]
     Indication: ABDOMINAL OPERATION
     Dates: start: 20111101
  8. SIMETHICONE [Concomitant]
     Indication: FLATULENCE
     Dates: start: 20111101

REACTIONS (9)
  - HALLUCINATION [None]
  - SYNCOPE [None]
  - DIZZINESS [None]
  - HYPOPNOEA [None]
  - MENTAL IMPAIRMENT [None]
  - CONFUSIONAL STATE [None]
  - SOMNOLENCE [None]
  - FATIGUE [None]
  - INCORRECT DRUG ADMINISTRATION DURATION [None]
